FAERS Safety Report 7489060-1 (Version None)
Quarter: 2011Q2

REPORT INFORMATION
  Report Type: 
  Country: None (occurrence: None)
  Receive Date: 20110518
  Receipt Date: 20110510
  Transmission Date: 20111010
  Serious: Yes (Other)
  Sender: FDA-Public Use
  Company Number: US-ELI_LILLY_AND_COMPANY-US201105003027

PATIENT
  Sex: Male

DRUGS (3)
  1. PROCRIT [Concomitant]
     Indication: RENAL DISORDER
     Dosage: UNK
  2. HUMULIN R [Suspect]
     Indication: TYPE 1 DIABETES MELLITUS
     Dosage: 6 U, EACH MORNING
  3. HUMULIN N [Suspect]
     Indication: TYPE 1 DIABETES MELLITUS
     Dosage: 16 U, EACH MORNING

REACTIONS (9)
  - PROCEDURAL COMPLICATION [None]
  - HYPERTENSION [None]
  - EYE LASER SURGERY [None]
  - CATARACT [None]
  - RED BLOOD CELL ABNORMALITY [None]
  - BLOOD GLUCOSE DECREASED [None]
  - VISUAL IMPAIRMENT [None]
  - EYE HAEMORRHAGE [None]
  - RENAL DISORDER [None]
